FAERS Safety Report 21934991 (Version 1)
Quarter: 2023Q1

REPORT INFORMATION
  Report Type: Spontaneous
  Country: CN (occurrence: CN)
  Receive Date: 20230201
  Receipt Date: 20230201
  Transmission Date: 20230417
  Serious: Yes (Other)
  Sender: FDA-Public Use
  Company Number: None

PATIENT
  Age: 36 Year
  Sex: Female
  Weight: 55 kg

DRUGS (4)
  1. CYCLOPHOSPHAMIDE [Suspect]
     Active Substance: CYCLOPHOSPHAMIDE
     Indication: Breast cancer female
     Dosage: 0.80 G, QD, DILUTED WITH 50 ML OF 0.9 % SODIUM CHLORIDE
     Route: 041
     Dates: start: 20230112, end: 20230112
  2. SODIUM CHLORIDE [Suspect]
     Active Substance: SODIUM CHLORIDE
     Indication: Medication dilution
     Dosage: 0.9%, 50 ML, QD, USED TO DILUTE 0.80 G CYCLOPHOSPHAMIDE
     Route: 041
     Dates: start: 20230112, end: 20230112
  3. SODIUM CHLORIDE [Suspect]
     Active Substance: SODIUM CHLORIDE
     Dosage: 0.9%, 100 ML, QD, USED TO DILUTE 120 MG EPIRUBICIN HYDROCHLORIDE
     Route: 041
     Dates: start: 20230112, end: 20230112
  4. EPIRUBICIN HYDROCHLORIDE [Suspect]
     Active Substance: EPIRUBICIN HYDROCHLORIDE
     Indication: Breast cancer female
     Dosage: 120 MG, QD, DILUTED WITH 100 ML OF 0.9 % SODIUM CHLORIDE
     Route: 041
     Dates: start: 20230112, end: 20230112

REACTIONS (1)
  - White blood cell count decreased [Recovered/Resolved]

NARRATIVE: CASE EVENT DATE: 20230123
